FAERS Safety Report 19056114 (Version 7)
Quarter: 2021Q2

REPORT INFORMATION
  Report Type: Report from Study
  Country: ES (occurrence: ES)
  Receive Date: 20210324
  Receipt Date: 20210517
  Transmission Date: 20210717
  Serious: Yes (Hospitalization)
  Sender: FDA-Public Use
  Company Number: ES-EISAI MEDICAL RESEARCH-EC-2021-090018

PATIENT
  Age: 55 Year
  Sex: Female
  Weight: 95.4 kg

DRUGS (9)
  1. PEMBROLIZUMAB. [Suspect]
     Active Substance: PEMBROLIZUMAB
     Route: 041
     Dates: start: 20210331
  2. CALCIFEDIOL [Concomitant]
     Active Substance: CALCIFEDIOL
     Dates: start: 20200813
  3. PEMBROLIZUMAB. [Suspect]
     Active Substance: PEMBROLIZUMAB
     Route: 041
     Dates: start: 20210303, end: 20210303
  4. ENALAPRIL MALEATE. [Concomitant]
     Active Substance: ENALAPRIL MALEATE
     Dates: start: 20200813
  5. LENVATINIB [Suspect]
     Active Substance: LENVATINIB
     Dosage: DOSE REDUCED
     Route: 048
     Dates: start: 20210331
  6. LORAZEPAM. [Concomitant]
     Active Substance: LORAZEPAM
     Dates: start: 20200813
  7. OMEPRAZOLE. [Concomitant]
     Active Substance: OMEPRAZOLE
     Dates: start: 20200813
  8. LENVATINIB [Suspect]
     Active Substance: LENVATINIB
     Indication: ENDOMETRIAL CANCER
     Route: 048
     Dates: start: 20210210, end: 20210314
  9. PEMBROLIZUMAB. [Suspect]
     Active Substance: PEMBROLIZUMAB
     Indication: ENDOMETRIAL CANCER
     Route: 041
     Dates: start: 20210210, end: 20210210

REACTIONS (1)
  - Renal failure [Recovered/Resolved]

NARRATIVE: CASE EVENT DATE: 20210316
